FAERS Safety Report 8574697-9 (Version None)
Quarter: 2012Q3

REPORT INFORMATION
  Report Type: 
  Country: None (occurrence: None)
  Receive Date: 20120807
  Receipt Date: 20120725
  Transmission Date: 20120928
  Serious: Yes (Hospitalization, Other)
  Sender: FDA-Public Use
  Company Number: CH-BIOGENIDEC-2011BI039876

PATIENT
  Age: 36 Year
  Sex: Male
  Weight: 92 kg

DRUGS (4)
  1. LIORESAL [Concomitant]
  2. TYSABRI [Suspect]
     Indication: MULTIPLE SCLEROSIS
     Route: 042
     Dates: start: 20080421, end: 20110525
  3. ISOTRETINOIN [Concomitant]
     Indication: ACNE CONGLOBATA
  4. CITALOPRAM HYDROBROMIDE [Concomitant]

REACTIONS (4)
  - PROGRESSIVE MULTIFOCAL LEUKOENCEPHALOPATHY [None]
  - SOCIAL PROBLEM [None]
  - IMMUNE RECONSTITUTION SYNDROME [None]
  - DEPRESSION [None]
